FAERS Safety Report 4425181-5 (Version None)
Quarter: 2004Q3

REPORT INFORMATION
  Report Type: 
  Country: None (occurrence: None)
  Receive Date: 20040811
  Receipt Date: 20040811
  Transmission Date: 20050211
  Serious: Yes (Other)
  Sender: FDA-Public Use
  Company Number: None

PATIENT
  Sex: Male
  Weight: 154.223 kg

DRUGS (1)
  1. FLUOCINONIDE [Suspect]
     Indication: ECZEMA
     Dosage: 2 DAY TOPICAL
     Route: 061
     Dates: start: 20040311, end: 20040810

REACTIONS (3)
  - CONDITION AGGRAVATED [None]
  - PHARMACEUTICAL PRODUCT COMPLAINT [None]
  - RASH [None]
